FAERS Safety Report 6577127-1 (Version None)
Quarter: 2010Q1

REPORT INFORMATION
  Report Type: 
  Country: None (occurrence: None)
  Receive Date: 20100210
  Receipt Date: 20100204
  Transmission Date: 20100710
  Serious: Yes (Other)
  Sender: FDA-Public Use
  Company Number: BR-PFIZER INC-2010015608

PATIENT
  Sex: Female

DRUGS (1)
  1. CELEBRA [Suspect]
     Dosage: 200 MG, UNK
     Route: 048
     Dates: start: 20100203, end: 20100203

REACTIONS (5)
  - BLOOD PRESSURE DECREASED [None]
  - HEART RATE IRREGULAR [None]
  - HYPERHIDROSIS [None]
  - MALAISE [None]
  - PRESYNCOPE [None]
